FAERS Safety Report 25496175 (Version 1)
Quarter: 2025Q2

REPORT INFORMATION
  Report Type: Spontaneous
  Country: GR (occurrence: GR)
  Receive Date: 20250630
  Receipt Date: 20250630
  Transmission Date: 20250716
  Serious: Yes (Hospitalization)
  Sender: PFIZER
  Company Number: GR-ELI_LILLY_AND_COMPANY-GR202506015847

PATIENT
  Age: 65 Year
  Sex: Female

DRUGS (3)
  1. METHOTREXATE SODIUM [Suspect]
     Active Substance: METHOTREXATE SODIUM
     Indication: Psoriatic arthropathy
     Route: 065
     Dates: start: 2010, end: 202501
  2. TALTZ [Suspect]
     Active Substance: IXEKIZUMAB
     Indication: Psoriatic arthropathy
     Route: 058
     Dates: start: 202407, end: 202501
  3. TALTZ [Suspect]
     Active Substance: IXEKIZUMAB
     Route: 058
     Dates: start: 202505

REACTIONS (4)
  - Eczematous cheilitis [Not Recovered/Not Resolved]
  - Eczema infected [Recovered/Resolved]
  - Eczematous cheilitis [Unknown]
  - Lip haemorrhage [Not Recovered/Not Resolved]

NARRATIVE: CASE EVENT DATE: 20240801
